FAERS Safety Report 7106146-1 (Version None)
Quarter: 2010Q4

REPORT INFORMATION
  Report Type: 
  Country: None (occurrence: None)
  Receive Date: 20101116
  Receipt Date: 20101012
  Transmission Date: 20110411
  Serious: Yes (Death, Hospitalization, Other)
  Sender: FDA-Public Use
  Company Number: AU-CELGENEUS-99-22601027

PATIENT
  Age: 40 Year
  Sex: Male

DRUGS (4)
  1. ROMIDEPSIN [Suspect]
     Route: 051
     Dates: start: 20041209, end: 20060209
  2. POTASSIUM CHLORIDE [Concomitant]
     Route: 065
  3. MOTRIN [Concomitant]
     Route: 065
  4. TYLENOL [Concomitant]
     Route: 065

REACTIONS (2)
  - EPSTEIN-BARR VIRUS INFECTION [None]
  - MULTI-ORGAN FAILURE [None]
